FAERS Safety Report 21418642 (Version 3)
Quarter: 2022Q4

REPORT INFORMATION
  Report Type: Spontaneous
  Country: US (occurrence: US)
  Receive Date: 20221006
  Receipt Date: 20221103
  Transmission Date: 20230113
  Serious: No
  Sender: FDA-Public Use
  Company Number: US-Blueprint Medicines Corporation-472

PATIENT
  Sex: Male

DRUGS (2)
  1. AYVAKIT [Suspect]
     Active Substance: AVAPRITINIB
     Indication: Gastrointestinal stromal tumour
     Route: 065
     Dates: start: 20220718
  2. LASIX [Suspect]
     Active Substance: FUROSEMIDE
     Indication: Product used for unknown indication
     Route: 065

REACTIONS (9)
  - Weight increased [Unknown]
  - Acquired phimosis [Recovered/Resolved]
  - Hypersomnia [Unknown]
  - Gait disturbance [Unknown]
  - Asthenia [Unknown]
  - Diarrhoea [Unknown]
  - Swelling [Unknown]
  - Periorbital swelling [Unknown]
  - Iodine allergy [Unknown]
